FAERS Safety Report 7225940-X (Version None)
Quarter: 2011Q1

REPORT INFORMATION
  Report Type: 
  Country: None (occurrence: None)
  Receive Date: 20110113
  Receipt Date: 20110110
  Transmission Date: 20110831
  Serious: Yes (Other)
  Sender: FDA-Public Use
  Company Number: DK-PFIZER INC-2011006487

PATIENT
  Age: 50 Year
  Sex: Male

DRUGS (2)
  1. SUTENT [Suspect]
     Indication: METASTATIC RENAL CELL CARCINOMA
     Dosage: 50 MG, 1X/DAY
     Route: 048
     Dates: start: 20090120
  2. ZOMETA [Suspect]
     Indication: METASTASES TO BONE
     Dosage: 4 MG, WEEKLY
     Route: 042
     Dates: start: 20080122, end: 20100329

REACTIONS (4)
  - PAIN [None]
  - TOOTH LOSS [None]
  - IMPAIRED HEALING [None]
  - PERIODONTITIS [None]
